FAERS Safety Report 5036552-0 (Version None)
Quarter: 2006Q2

REPORT INFORMATION
  Report Type: 
  Country: None (occurrence: None)
  Receive Date: 20060614
  Receipt Date: 20060111
  Transmission Date: 20061013
  Serious: Yes (Hospitalization)
  Sender: FDA-Public Use
  Company Number: 430003M06USA

PATIENT
  Age: 56 Year
  Sex: Female
  Weight: 48.1 kg

DRUGS (12)
  1. NOVANTRONE [Suspect]
     Indication: ACUTE MYELOID LEUKAEMIA
     Dates: start: 20040615, end: 20040619
  2. CEP-701 (INVESTIGATIONAL DRUG) [Suspect]
     Indication: ACUTE MYELOID LEUKAEMIA
     Dosage: SEE IMAGE
     Route: 048
     Dates: start: 20040621, end: 20040721
  3. CEP-701 (INVESTIGATIONAL DRUG) [Suspect]
     Indication: ACUTE MYELOID LEUKAEMIA
     Dosage: SEE IMAGE
     Route: 048
     Dates: start: 20040722, end: 20040722
  4. CEP-701 (INVESTIGATIONAL DRUG) [Suspect]
     Indication: ACUTE MYELOID LEUKAEMIA
     Dosage: SEE IMAGE
     Route: 048
     Dates: start: 20040726, end: 20040728
  5. CEP-701 (INVESTIGATIONAL DRUG) [Suspect]
     Indication: ACUTE MYELOID LEUKAEMIA
     Dosage: SEE IMAGE
     Route: 048
     Dates: start: 20040729, end: 20040729
  6. ETOPOSIDE [Suspect]
     Dates: start: 20040615, end: 20040619
  7. CYTARABINE [Suspect]
     Dates: start: 20040615, end: 20040619
  8. TEQUIN [Concomitant]
  9. ACETAMINOPHEN [Concomitant]
  10. DIPHENHYDRAMINE HCL [Concomitant]
  11. DARVON [Concomitant]
  12. VALACICLOVIR(VALACICLOVIR /01269701/) [Concomitant]

REACTIONS (1)
  - FEBRILE NEUTROPENIA [None]
